FAERS Safety Report 7034078-6 (Version None)
Quarter: 2010Q4

REPORT INFORMATION
  Report Type: 
  Country: None (occurrence: None)
  Receive Date: 20101006
  Receipt Date: 20100927
  Transmission Date: 20110411
  Serious: Yes (Hospitalization)
  Sender: FDA-Public Use
  Company Number: TCI2010A04085

PATIENT
  Age: 80 Year
  Sex: Female

DRUGS (9)
  1. TAKEPRON OD TABLETS [Suspect]
     Indication: PROPHYLAXIS
     Dosage: 15 MG (15 MG, 1 IN 1 D), PER ORAL
     Route: 048
     Dates: start: 20091112, end: 20100601
  2. TAKEPRON OD TABLETS [Suspect]
     Indication: REFLUX OESOPHAGITIS
     Dosage: 15 MG (15 MG, 1 IN 1 D), PER ORAL
     Route: 048
     Dates: start: 20091112, end: 20100601
  3. ASPIRIN [Suspect]
     Dosage: 100 MG (100 MG, 1 D), PER ORAL
     Route: 048
     Dates: end: 20100820
  4. PREDNISOLONE [Concomitant]
  5. PREDOHAN (PREDNISOLONE) [Concomitant]
  6. FUROSEMIDE [Concomitant]
  7. FOSAMAX [Concomitant]
  8. HEMOCURON (TRIBENOSIDE) [Concomitant]
  9. FERROMIA (FERRON CITRATE) [Concomitant]

REACTIONS (4)
  - COLITIS COLLAGENOUS [None]
  - DIARRHOEA [None]
  - HYPOALBUMINAEMIA [None]
  - OEDEMA [None]
